FAERS Safety Report 5868161-5 (Version None)
Quarter: 2008Q3

REPORT INFORMATION
  Report Type: 
  Country: None (occurrence: None)
  Receive Date: 20080902
  Receipt Date: 20060821
  Transmission Date: 20090109
  Serious: Yes (Hospitalization)
  Sender: FDA-Public Use
  Company Number: JP-ASTRAZENECA-2006AP03501

PATIENT
  Age: 26211 Day
  Sex: Female
  Weight: 51 kg

DRUGS (13)
  1. OMEPRAZOLE [Suspect]
     Indication: GASTRIC ULCER
     Route: 048
     Dates: start: 20060413, end: 20060615
  2. BLOPRESS [Suspect]
     Indication: HYPERTENSION
     Route: 048
     Dates: start: 20030403, end: 20060613
  3. ALLOID [Suspect]
     Indication: GASTRIC ULCER
     Route: 048
     Dates: start: 20060413
  4. THYRADIN [Concomitant]
     Indication: HYPOTHYROIDISM
     Route: 048
     Dates: start: 20030403
  5. PREDONINE [Concomitant]
     Indication: RHEUMATOID ARTHRITIS
     Route: 048
     Dates: start: 20030610
  6. CINAL [Concomitant]
     Indication: VITAMIN C DEFICIENCY
     Route: 048
     Dates: start: 20030610
  7. GLAKAY [Concomitant]
     Indication: OSTEOPOROSIS
     Route: 048
     Dates: start: 20050316
  8. DEPAS [Concomitant]
     Indication: ANXIETY DISORDER
     Route: 048
     Dates: start: 20051012
  9. LASIX [Concomitant]
     Indication: RENAL FAILURE CHRONIC
     Route: 048
     Dates: start: 20060315
  10. EPOGIN [Concomitant]
     Indication: NEPHROGENIC ANAEMIA
     Route: 042
     Dates: start: 20060403
  11. GASTROM [Concomitant]
     Indication: GASTRIC ULCER
     Route: 048
     Dates: start: 20060413
  12. CALTAN [Concomitant]
     Indication: HYPOCALCAEMIA
     Route: 048
     Dates: start: 20060417
  13. LAXOBERON [Concomitant]
     Indication: CONSTIPATION
     Route: 048
     Dates: start: 20060417

REACTIONS (1)
  - ANAPHYLACTIC REACTION [None]
